FAERS Safety Report 16066773 (Version 1)
Quarter: 2019Q1

REPORT INFORMATION
  Report Type: Spontaneous
  Country: FR (occurrence: FR)
  Receive Date: 20190313
  Receipt Date: 20190313
  Transmission Date: 20190418
  Serious: Yes (Hospitalization)
  Sender: FDA-Public Use
  Company Number: FR-MYLANLABS-2019M1022726

PATIENT
  Age: 88 Year
  Sex: Male

DRUGS (7)
  1. LEVOFLOXACINE ACCORD [Suspect]
     Active Substance: LEVOFLOXACIN
     Indication: PSEUDOMONAL BACTERAEMIA
     Dosage: 2 DOSAGE FORM, QD
     Route: 048
     Dates: start: 20180815
  2. TOBRADEX [Suspect]
     Active Substance: DEXAMETHASONE\TOBRAMYCIN
     Indication: ENDOPHTHALMITIS
     Dosage: 1 GTT DROPS, QH
     Route: 047
     Dates: start: 20180815
  3. TAZOCILLINE [Concomitant]
     Active Substance: PIPERACILLIN SODIUM\TAZOBACTAM SODIUM
     Indication: PSEUDOMONAL BACTERAEMIA
     Dosage: UNK
     Route: 042
     Dates: start: 20180810, end: 20180814
  4. DEXAMETHASONE. [Suspect]
     Active Substance: DEXAMETHASONE
     Indication: ENDOPHTHALMITIS
     Dosage: NON RENSEIGN?E
     Route: 057
     Dates: start: 20180815, end: 20180816
  5. ATROPINE ALCON [Suspect]
     Active Substance: ATROPINE SULFATE
     Indication: ENDOPHTHALMITIS
     Dosage: 2 UNK, QD
     Route: 047
     Dates: start: 20180815
  6. PIPERACILLINE PANPHARMA [Suspect]
     Active Substance: PIPERACILLIN SODIUM
     Indication: PSEUDOMONAL BACTERAEMIA
     Dosage: NON RENSEIGN?E
     Route: 042
     Dates: start: 20180814, end: 20180817
  7. CEFTAZIDIME PANPHARMA [Concomitant]
     Active Substance: CEFTAZIDIME
     Indication: PSEUDOMONAL BACTERAEMIA
     Route: 042
     Dates: start: 20180817

REACTIONS (1)
  - Delusion [Not Recovered/Not Resolved]

NARRATIVE: CASE EVENT DATE: 20180815
